FAERS Safety Report 17751707 (Version 2)
Quarter: 2020Q2

REPORT INFORMATION
  Report Type: Report from Study
  Country: CA (occurrence: CA)
  Receive Date: 20200506
  Receipt Date: 20200512
  Transmission Date: 20200714
  Serious: Yes (Death, Life-Threatening, Hospitalization, Disabling)
  Sender: FDA-Public Use
  Company Number: CA-ASTRAZENECA-2019SE79241

PATIENT
  Age: 907 Month
  Sex: Male

DRUGS (11)
  1. CALCIUM CARBONATE. [Concomitant]
     Active Substance: CALCIUM CARBONATE
     Route: 048
  2. TAGRISSO [Suspect]
     Active Substance: OSIMERTINIB
     Indication: LUNG NEOPLASM MALIGNANT
     Route: 048
     Dates: start: 201901, end: 201904
  3. SENNOSIDES. [Concomitant]
     Active Substance: SENNOSIDES
  4. DOCUSATE SODIUM. [Concomitant]
     Active Substance: DOCUSATE SODIUM
  5. HYDROMORPHONE [Concomitant]
     Active Substance: HYDROMORPHONE
     Route: 048
  6. TAGRISSO [Suspect]
     Active Substance: OSIMERTINIB
     Indication: LUNG NEOPLASM MALIGNANT
     Route: 048
     Dates: start: 201910
  7. VITAMIN D [Concomitant]
     Active Substance: VITAMIN D NOS
     Dosage: 1000 UNITS
  8. RISEDRONATE [Concomitant]
     Active Substance: RISEDRONATE SODIUM
  9. PREDNISONE. [Concomitant]
     Active Substance: PREDNISONE
  10. PANTOPRAZOLE [Concomitant]
     Active Substance: PANTOPRAZOLE
  11. TRIMETHOPRIM. [Concomitant]
     Active Substance: TRIMETHOPRIM
     Route: 048

REACTIONS (7)
  - Malignant neoplasm progression [Fatal]
  - Drug ineffective [Fatal]
  - Respiratory failure [Not Recovered/Not Resolved]
  - Pulmonary embolism [Unknown]
  - Pneumonia [Unknown]
  - Radiation pneumonitis [Unknown]
  - Aortic valve incompetence [Unknown]

NARRATIVE: CASE EVENT DATE: 201904
